FAERS Safety Report 9061832 (Version 3)
Quarter: 2014Q1

REPORT INFORMATION
  Report Type: Spontaneous
  Country: AR (occurrence: AR)
  Receive Date: 20130128
  Receipt Date: 20140218
  Transmission Date: 20141002
  Serious: Yes (Other)
  Sender: FDA-Public Use
  Company Number: AR-AMGEN-ARGSP2013005218

PATIENT
  Age: 59 Year
  Sex: Female

DRUGS (7)
  1. ENBREL [Suspect]
     Indication: RHEUMATOID ARTHRITIS
     Dosage: 50 MG, WEEKLY
     Route: 065
     Dates: start: 20110601
  2. METHOTREXATE SODIUM [Suspect]
     Indication: PRODUCT USED FOR UNKNOWN INDICATION
     Dosage: UNK
     Route: 065
     Dates: start: 2007, end: 201210
  3. AMLODIPINE [Concomitant]
     Indication: HYPERTENSION
     Dosage: 10 MG, QD
  4. VALSARTAN [Concomitant]
     Indication: HYPERTENSION
     Dosage: 160 MG, QD
  5. METFORMIN [Concomitant]
     Indication: DIABETES MELLITUS
     Dosage: 850 UNK, UNK
  6. DICLOFENAC [Concomitant]
     Indication: PAIN
     Dosage: 75 MG, 1X/DAY
  7. RANITIDINE [Concomitant]
     Indication: CHOLELITHIASIS
     Dosage: UNK

REACTIONS (4)
  - Bile duct stone [Unknown]
  - Local swelling [Unknown]
  - Pain in extremity [Unknown]
  - Gait disturbance [Recovered/Resolved]
